FAERS Safety Report 6928957-5 (Version None)
Quarter: 2010Q3

REPORT INFORMATION
  Report Type: 
  Country: None (occurrence: None)
  Receive Date: 20100817
  Receipt Date: 20100809
  Transmission Date: 20110219
  Serious: Yes (Other)
  Sender: FDA-Public Use
  Company Number: US-PFIZER INC-2010092777

PATIENT
  Sex: Female

DRUGS (2)
  1. CADUET [Suspect]
     Indication: HYPERTENSION
     Dosage: 10 MG/10 MG, DAILY
     Route: 048
     Dates: start: 20080101
  2. CADUET [Suspect]
     Indication: BLOOD CHOLESTEROL INCREASED

REACTIONS (1)
  - SWELLING FACE [None]
